FAERS Safety Report 8022186-2 (Version None)
Quarter: 2011Q4

REPORT INFORMATION
  Report Type: 
  Country: None (occurrence: None)
  Receive Date: 20111229
  Receipt Date: 20111220
  Transmission Date: 20120403
  Serious: Yes (Hospitalization)
  Sender: FDA-Public Use
  Company Number: OMPQ-NO-1112L-2058

PATIENT
  Age: 69 Year
  Sex: Male

DRUGS (1)
  1. OMNIPAQUE 70 [Suspect]
     Indication: ACUTE CORONARY SYNDROME
     Dosage: 100 ML, SINGLE DOSE
     Dates: start: 20100101, end: 20100101

REACTIONS (10)
  - CONTRAST MEDIA REACTION [None]
  - HEADACHE [None]
  - STUPOR [None]
  - VOMITING [None]
  - COMA SCALE ABNORMAL [None]
  - DRUG LEVEL INCREASED [None]
  - DISORIENTATION [None]
  - HEMIPLEGIA [None]
  - NAUSEA [None]
  - BRAIN SCAN ABNORMAL [None]
